FAERS Safety Report 7241169-3 (Version None)
Quarter: 2011Q1

REPORT INFORMATION
  Report Type: 
  Country: None (occurrence: None)
  Receive Date: 20110124
  Receipt Date: 20110119
  Transmission Date: 20110831
  Serious: Yes (Death, Other)
  Sender: FDA-Public Use
  Company Number: JP-ROCHE-703274

PATIENT
  Age: 77 Year
  Sex: Male

DRUGS (3)
  1. VESANOID [Suspect]
     Route: 065
     Dates: start: 20090415
  2. VESANOID [Suspect]
     Route: 065
     Dates: start: 20090401
  3. PREDNISOLONE [Concomitant]

REACTIONS (4)
  - ASCITES [None]
  - SEPTIC SHOCK [None]
  - TRANSAMINASES INCREASED [None]
  - BLOOD BILIRUBIN INCREASED [None]
